FAERS Safety Report 8906483 (Version 1)
Quarter: 2012Q4

REPORT INFORMATION
  Report Type: Spontaneous
  Country: DK (occurrence: None)
  Receive Date: 20121107
  Receipt Date: 20121107
  Transmission Date: 20130627
  Serious: Yes (Death, Other)
  Sender: FDA-Public Use
  Company Number: 2012MA012944

PATIENT
  Age: 17 Year
  Sex: Male

DRUGS (6)
  1. GEMCITABINE HYDROCHLORIDE [Suspect]
     Indication: OSTEOSARCOMA METASTATIC
     Dosage: 8 CYC
  2. DOCETAXEL [Suspect]
     Indication: OSTEOSARCOMA METASTATIC
     Dosage: 8 CYC
  3. CISPLATIN [Suspect]
     Indication: OSTEOSARCOMA METASTATIC
  4. IFOSFAMIDE [Suspect]
     Indication: OSTEOSARCOMA METASTATIC
  5. METHOTREXATE (METHOTREXATE) [Suspect]
     Indication: OSTEOSARCOMA METASTATIC
  6. DOXORUBICIN (DOXORUBICIN) (DOXORUBICIN) [Suspect]
     Indication: OSTEOSARCOMA METASTATIC

REACTIONS (3)
  - Metastases to chest wall [None]
  - Metastases to muscle [None]
  - Metastases to peritoneum [None]
